FAERS Safety Report 8888997 (Version 1)
Quarter: 2012Q4

REPORT INFORMATION
  Report Type: 
  Country: DK (occurrence: DK)
  Receive Date: 20121106
  Receipt Date: 20121106
  Transmission Date: 20130627
  Serious: Yes (Hospitalization)
  Sender: FDA-Public Use
  Company Number: PHHO2011DK02602

PATIENT
  Age: 69 Year
  Sex: Female
  Weight: 59 kg

DRUGS (5)
  1. BLINDED ALISKIREN [Suspect]
     Indication: CARDIAC FAILURE
     Dosage: Code not broken
     Route: 048
     Dates: start: 20091202, end: 20110204
  2. BLINDED ENALAPRIL [Suspect]
     Indication: CARDIAC FAILURE
     Dosage: Code not broken
     Route: 048
     Dates: start: 20091202, end: 20110204
  3. BLINDED NO TREATMENT RECEIVED [Suspect]
     Indication: CARDIAC FAILURE
     Dosage: Code not broken
     Route: 048
     Dates: start: 20091202, end: 20110204
  4. SELOZOK [Concomitant]
     Indication: CARDIAC FAILURE
     Dosage: 125 mg, QD
     Route: 048
     Dates: start: 20090916, end: 20110204
  5. FURIX [Concomitant]
     Indication: CARDIAC FAILURE
     Dosage: 150 mg, UNK
     Dates: start: 20011207

REACTIONS (5)
  - Fall [Recovered/Resolved]
  - Injury [Unknown]
  - Pain [Unknown]
  - Ventricular arrhythmia [Recovered/Resolved]
  - Traumatic haematoma [Recovered/Resolved]
